FAERS Safety Report 14583533 (Version 2)
Quarter: 2018Q2

REPORT INFORMATION
  Report Type: Spontaneous
  Country: JP (occurrence: JP)
  Receive Date: 20180228
  Receipt Date: 20180411
  Transmission Date: 20180711
  Serious: Yes (Hospitalization, Other)
  Sender: FDA-Public Use
  Company Number: PHJP2018JP004125

PATIENT
  Age: 69 Year
  Sex: Male

DRUGS (7)
  1. FEBURIC [Concomitant]
     Active Substance: FEBUXOSTAT
     Indication: PRODUCT USED FOR UNKNOWN INDICATION
     Dosage: 10 MG, UNK
     Route: 065
     Dates: start: 20170914, end: 20180116
  2. ASPARA K [Concomitant]
     Active Substance: POTASSIUM ASPARTATE
     Indication: PRODUCT USED FOR UNKNOWN INDICATION
     Dosage: 300 MG, UNK
     Route: 065
     Dates: start: 20171130
  3. ASPARA K [Concomitant]
     Active Substance: POTASSIUM ASPARTATE
     Dosage: 900 MG, UNK
     Route: 065
     Dates: start: 20171203, end: 20171217
  4. URSO [Concomitant]
     Active Substance: URSODIOL
     Indication: PRODUCT USED FOR UNKNOWN INDICATION
     Dosage: 300 MG, UNK
     Route: 065
     Dates: start: 20171102
  5. TASIGNA [Suspect]
     Active Substance: NILOTINIB
     Indication: CHRONIC MYELOID LEUKAEMIA
     Dosage: 600 MG, UNK
     Route: 048
     Dates: start: 20170921, end: 20171109
  6. URSO [Concomitant]
     Active Substance: URSODIOL
     Dosage: 600 MG, UNK
     Route: 065
     Dates: start: 20171109
  7. TASIGNA [Suspect]
     Active Substance: NILOTINIB
     Dosage: 300 MG, UNK
     Route: 048
     Dates: start: 20180104, end: 20180116

REACTIONS (12)
  - Aortic valve sclerosis [Unknown]
  - Oropharyngeal pain [Unknown]
  - Cardiomegaly [Unknown]
  - Pericardial effusion [Recovering/Resolving]
  - Atrial fibrillation [Unknown]
  - Atelectasis [Unknown]
  - Pharyngitis [Unknown]
  - Dyspnoea [Unknown]
  - Liver function test increased [Recovered/Resolved]
  - Faecaloma [Unknown]
  - Pleural effusion [Unknown]
  - Pyrexia [Unknown]

NARRATIVE: CASE EVENT DATE: 20171009
